FAERS Safety Report 24698536 (Version 3)
Quarter: 2025Q2

REPORT INFORMATION
  Report Type: Report from Study
  Country: UY (occurrence: UY)
  Receive Date: 20241204
  Receipt Date: 20250417
  Transmission Date: 20250716
  Serious: Yes (Other)
  Sender: ABBVIE
  Company Number: UY-ABBVIE-6027597

PATIENT
  Age: 49 Year
  Sex: Female

DRUGS (1)
  1. RINVOQ [Suspect]
     Active Substance: UPADACITINIB
     Indication: Rheumatoid arthritis
     Dosage: FORM STRENGTH: 15 MILLIGRAM?MODIFIED-RELEASE FILM-COATED TABLET?RINVOQ 15MG X 30 TABLETS
     Route: 048
     Dates: start: 20211104

REACTIONS (10)
  - Hypertension [Unknown]
  - Influenza [Recovered/Resolved]
  - Headache [Unknown]
  - Eye disorder [Unknown]
  - Dysstasia [Unknown]
  - Ocular hyperaemia [Unknown]
  - Nausea [Unknown]
  - Diarrhoea [Unknown]
  - Arthralgia [Unknown]
  - Plantar fasciitis [Unknown]

NARRATIVE: CASE EVENT DATE: 20240901
